FAERS Safety Report 5534267-3 (Version None)
Quarter: 2007Q4

REPORT INFORMATION
  Report Type: 
  Country: None (occurrence: None)
  Receive Date: 20071205
  Receipt Date: 20071129
  Transmission Date: 20080405
  Serious: Yes (Other)
  Sender: FDA-Public Use
  Company Number: US-ASTRAZENECA-2007UW27313

PATIENT
  Age: 81 Year
  Sex: Female
  Weight: 68 kg

DRUGS (8)
  1. PULMICORT RESPULES [Suspect]
     Indication: CHRONIC OBSTRUCTIVE PULMONARY DISEASE
     Dosage: 0.5 MG/2 ML
     Route: 055
     Dates: start: 20070501
  2. LIPITOR [Concomitant]
  3. HYDROCHLOROTHIAZIDE [Concomitant]
  4. DUONEB [Concomitant]
     Route: 055
  5. SINGULAIR [Concomitant]
  6. PREDNISONE TAB [Concomitant]
  7. KLONOPIN [Concomitant]
     Indication: MENIERE'S DISEASE
  8. VITAMIN K [Concomitant]

REACTIONS (6)
  - BALANCE DISORDER [None]
  - HEART RATE IRREGULAR [None]
  - MALAISE [None]
  - NIGHT SWEATS [None]
  - PYREXIA [None]
  - TACHYCARDIA [None]
